FAERS Safety Report 9287688 (Version 1)
Quarter: 2013Q2

REPORT INFORMATION
  Report Type: Report from Study
  Country: CA (occurrence: CA)
  Receive Date: 20130514
  Receipt Date: 20130514
  Transmission Date: 20140414
  Serious: Yes (Other)
  Sender: FDA-Public Use
  Company Number: CA-JNJFOC-20130417992

PATIENT
  Age: 42 Year
  Sex: Male
  Weight: 74.84 kg

DRUGS (1)
  1. REMICADE [Suspect]
     Indication: CROHN^S DISEASE
     Dosage: HAD RECEIVED 6 OR 7 DOSES TILL THE TIME OF REPORTING
     Route: 042
     Dates: start: 201203

REACTIONS (2)
  - Weight increased [Unknown]
  - Therapeutic response decreased [Unknown]
